FAERS Safety Report 26178806 (Version 1)
Quarter: 2025Q4

REPORT INFORMATION
  Report Type: Spontaneous
  Country: JP (occurrence: JP)
  Receive Date: 20251219
  Receipt Date: 20251219
  Transmission Date: 20260117
  Serious: Yes (Other)
  Sender: ROCHE
  Company Number: JP-CHUGAI-2025040847

PATIENT
  Age: 56 Year
  Sex: Male

DRUGS (1)
  1. VABYSMO [Suspect]
     Active Substance: FARICIMAB-SVOA
     Indication: Diabetic retinal oedema
     Dosage: 120 MG/ML

REACTIONS (2)
  - Non-infectious endophthalmitis [Recovering/Resolving]
  - Diabetic eye disease [Recovering/Resolving]
